FAERS Safety Report 25824795 (Version 3)
Quarter: 2025Q4

REPORT INFORMATION
  Report Type: Report from Study
  Country: EU (occurrence: EU)
  Receive Date: 20250919
  Receipt Date: 20251212
  Transmission Date: 20260117
  Serious: Yes (Hospitalization)
  Sender: ABBVIE
  Company Number: EU-ABBVIE-6194165

PATIENT
  Age: 72 Year
  Sex: Male

DRUGS (2)
  1. FOSCARBIDOPA\FOSLEVODOPA [Suspect]
     Active Substance: FOSCARBIDOPA\FOSLEVODOPA
     Indication: Parkinson^s disease
     Dosage: SD: 0.60 ML, CRN: 0.34 ML/H, CR: 0.37 ML/H, CRH: 0.40 ML/H, ED: 0.30 ML.
     Route: 058
     Dates: start: 20250114, end: 2025
  2. FOSCARBIDOPA\FOSLEVODOPA [Suspect]
     Active Substance: FOSCARBIDOPA\FOSLEVODOPA
     Dosage: SD: 0.60ML, CRN: 0.36 ML/H, CR: 0.42 ML/H, CRH: 0.44 ML/H, ED: 0.30 ML
     Route: 058
     Dates: start: 2025

REACTIONS (6)
  - Pain in extremity [Not Recovered/Not Resolved]
  - Hypokinesia [Not Recovered/Not Resolved]
  - On and off phenomenon [Not Recovered/Not Resolved]
  - Polyneuropathy [Not Recovered/Not Resolved]
  - Immobile [Not Recovered/Not Resolved]
  - Dysarthria [Not Recovered/Not Resolved]

NARRATIVE: CASE EVENT DATE: 20250101
